FAERS Safety Report 7554050-7 (Version None)
Quarter: 2011Q2

REPORT INFORMATION
  Report Type: 
  Country: None (occurrence: None)
  Receive Date: 20110617
  Receipt Date: 20110603
  Transmission Date: 20111010
  Serious: Yes (Other)
  Sender: FDA-Public Use
  Company Number: BR-SANOFI-AVENTIS-2011SA036530

PATIENT
  Age: 40 Year
  Sex: Male
  Weight: 89 kg

DRUGS (1)
  1. ALLEGRA D 24 HOUR [Suspect]
     Dosage: TAKEN FROM : MAY 2011
     Route: 048
     Dates: start: 20110101, end: 20110101

REACTIONS (2)
  - PNEUMONIA [None]
  - DRUG INEFFECTIVE [None]
